FAERS Safety Report 4376929-X (Version None)
Quarter: 2004Q2

REPORT INFORMATION
  Report Type: 
  Country: None (occurrence: None)
  Receive Date: 20040608
  Receipt Date: 20040525
  Transmission Date: 20050107
  Serious: Yes (Life-Threatening, Hospitalization)
  Sender: FDA-Public Use
  Company Number: 04P-056-0262159-00

PATIENT
  Age: 11 Month
  Sex: Female

DRUGS (6)
  1. BIAXIN [Suspect]
     Indication: ACUTE TONSILLITIS
     Dosage: PER ORAL
     Route: 048
     Dates: start: 20040426, end: 20040427
  2. BIAXIN [Suspect]
     Indication: PHARYNGOLARYNGEAL PAIN
     Dosage: PER ORAL
     Route: 048
     Dates: start: 20040426, end: 20040427
  3. ACETAMINOPHEN [Suspect]
     Indication: PYREXIA
     Dosage: PER ORAL
     Route: 048
     Dates: start: 20040426, end: 20040427
  4. IBUPROFEN [Suspect]
     Indication: PYREXIA
     Dosage: PER ORAL
     Route: 048
     Dates: start: 20040423, end: 20040424
  5. AMOXICILLIN [Suspect]
     Indication: PHARYNGOLARYNGEAL PAIN
     Dosage: PER ORAL
     Route: 048
     Dates: start: 20040425, end: 20040426
  6. HELICIDINE [Suspect]
     Dosage: PER ORAL
     Route: 048
     Dates: start: 20040426, end: 20040427

REACTIONS (12)
  - ACUTE RESPIRATORY DISTRESS SYNDROME [None]
  - ACUTE TONSILLITIS [None]
  - ANAEMIA [None]
  - CREPITATIONS [None]
  - ERYTHEMA [None]
  - FACE OEDEMA [None]
  - GENERAL PHYSICAL HEALTH DETERIORATION [None]
  - HAEMODYNAMIC INSTABILITY [None]
  - PHARYNGOLARYNGEAL PAIN [None]
  - SOMNOLENCE [None]
  - THROMBOCYTOPENIA [None]
  - VARICELLA [None]
